FAERS Safety Report 6551505-9 (Version None)
Quarter: 2010Q1

REPORT INFORMATION
  Report Type: 
  Country: None (occurrence: None)
  Receive Date: 20100126
  Receipt Date: 20100122
  Transmission Date: 20100710
  Serious: Yes (Death)
  Sender: FDA-Public Use
  Company Number: BR-ASTRAZENECA-2010SE03168

PATIENT
  Age: 56 Year
  Sex: Female
  Weight: 80 kg

DRUGS (6)
  1. NEXIUM [Suspect]
     Indication: GASTRITIS
     Route: 048
     Dates: start: 20091101
  2. OMEPRAZOLE [Suspect]
     Indication: GASTROOESOPHAGEAL REFLUX PROPHYLAXIS
     Route: 048
     Dates: start: 20040101, end: 20091101
  3. TECNOMET [Concomitant]
     Indication: RHEUMATOID ARTHRITIS
     Route: 048
     Dates: start: 20030101
  4. BROMOPRIDE [Concomitant]
     Indication: DYSPEPSIA
     Route: 048
     Dates: start: 20060101
  5. PANTOPRAZOLE [Concomitant]
     Indication: GASTRITIS
     Route: 048
     Dates: start: 20091101
  6. DIPROSPAN [Concomitant]
     Indication: RHEUMATOID ARTHRITIS
     Dosage: SEVERAL TIMES
     Dates: start: 20030101

REACTIONS (4)
  - BACK PAIN [None]
  - GASTRITIS [None]
  - HYPERHIDROSIS [None]
  - PULMONARY EMBOLISM [None]
